FAERS Safety Report 7557813-7 (Version None)
Quarter: 2011Q2

REPORT INFORMATION
  Report Type: 
  Country: None (occurrence: None)
  Receive Date: 20110620
  Receipt Date: 20110613
  Transmission Date: 20111010
  Serious: Yes (Hospitalization)
  Sender: FDA-Public Use
  Company Number: JP-BRISTOL-MYERS SQUIBB COMPANY-14840755

PATIENT
  Age: 63 Year
  Sex: Male
  Weight: 72 kg

DRUGS (7)
  1. LANSOPRAZOLE [Concomitant]
     Dates: start: 20090501
  2. WARFARIN SODIUM [Suspect]
     Indication: THROMBOSIS PROPHYLAXIS
     Route: 048
     Dates: start: 20090630, end: 20091030
  3. VERPAMIL HCL [Concomitant]
     Dates: start: 20080407
  4. DIGOXIN [Concomitant]
     Dates: start: 20080324
  5. SPIRONOLACTONE [Concomitant]
     Dates: start: 20090224
  6. AZOSEMIDE [Concomitant]
     Dates: start: 20090310
  7. PLACEBO [Suspect]
     Indication: THROMBOSIS PROPHYLAXIS
     Route: 048
     Dates: start: 20090630, end: 20091030

REACTIONS (1)
  - DIABETES MELLITUS [None]
